FAERS Safety Report 8588938-5 (Version None)
Quarter: 2012Q3

REPORT INFORMATION
  Report Type: 
  Country: None (occurrence: None)
  Receive Date: 20120813
  Receipt Date: 20120802
  Transmission Date: 20120928
  Serious: Yes (Hospitalization, Disabling)
  Sender: FDA-Public Use
  Company Number: BR-NOVOPROD-352024

PATIENT
  Age: 67 Year
  Sex: Female
  Weight: 60 kg

DRUGS (2)
  1. NOVOLIN N [Suspect]
     Indication: DIABETES MELLITUS
     Dosage: 50 U, QD
     Route: 065
     Dates: start: 20110112
  2. NOVOLIN R [Suspect]
     Indication: DIABETES MELLITUS
     Dosage: UNK

REACTIONS (1)
  - TOE AMPUTATION [None]
